FAERS Safety Report 6685120-3 (Version None)
Quarter: 2010Q2

REPORT INFORMATION
  Report Type: 
  Country: None (occurrence: None)
  Receive Date: 20100416
  Receipt Date: 20090915
  Transmission Date: 20101027
  Serious: No
  Sender: FDA-Public Use
  Company Number: US-BRISTOL-MYERS SQUIBB COMPANY-14781231

PATIENT
  Age: 59 Year
  Sex: Female

DRUGS (5)
  1. CARBOPLATIN [Suspect]
     Indication: BREAST CANCER
     Dosage: EVERY 3 WEEKS + 1 WEEK OFF
     Route: 042
  2. ABRAXANE [Suspect]
     Indication: BREAST CANCER
     Dosage: EVERY 3 WEEKS + 1 WEEK OFF
     Dates: start: 20090630, end: 20090831
  3. NEUPOGEN [Concomitant]
     Route: 058
  4. ALOXI [Concomitant]
  5. DECADRON [Concomitant]

REACTIONS (3)
  - BONE PAIN [None]
  - DECREASED APPETITE [None]
  - PAIN [None]
